FAERS Safety Report 21782288 (Version 2)
Quarter: 2023Q1

REPORT INFORMATION
  Report Type: Report from Study
  Country: US (occurrence: US)
  Receive Date: 20221227
  Receipt Date: 20230309
  Transmission Date: 20230417
  Serious: No
  Sender: FDA-Public Use
  Company Number: US-ABBVIE-4203212

PATIENT
  Age: 67 Year
  Sex: Male

DRUGS (2)
  1. SKYRIZI [Suspect]
     Active Substance: RISANKIZUMAB-RZAA
     Indication: Psoriasis
     Route: 058
     Dates: start: 20220428
  2. SKYRIZI [Suspect]
     Active Substance: RISANKIZUMAB-RZAA
     Route: 058

REACTIONS (4)
  - Therapeutic response shortened [Recovered/Resolved]
  - Fatigue [Recovered/Resolved]
  - Psoriasis [Recovered/Resolved]
  - Dry skin [Recovering/Resolving]

NARRATIVE: CASE EVENT DATE: 20220301
